FAERS Safety Report 24039839 (Version 1)
Quarter: 2024Q3

REPORT INFORMATION
  Report Type: Spontaneous
  Country: US (occurrence: US)
  Receive Date: 20240702
  Receipt Date: 20240702
  Transmission Date: 20241017
  Serious: Yes (Life-Threatening, Hospitalization)
  Sender: MYLAN
  Company Number: US-MYLANLABS-2024M1057242

PATIENT
  Age: 74 Year
  Sex: Female

DRUGS (8)
  1. AMIODARONE [Suspect]
     Active Substance: AMIODARONE
     Indication: Hypertension
     Dosage: UNK
     Route: 065
  2. AMIODARONE [Suspect]
     Active Substance: AMIODARONE
     Indication: Atrial fibrillation
  3. AMIODARONE [Suspect]
     Active Substance: AMIODARONE
     Indication: Hypertension
     Dosage: UNK, AMIODARONE BOLUS
     Route: 065
  4. AMIODARONE [Suspect]
     Active Substance: AMIODARONE
     Indication: Atrial fibrillation
     Dosage: UNK (INFUSION)
     Route: 065
  5. DILTIAZEM [Suspect]
     Active Substance: DILTIAZEM
     Indication: Hypertension
     Dosage: UNK
     Route: 065
  6. DILTIAZEM [Suspect]
     Active Substance: DILTIAZEM
     Indication: Atrial fibrillation
  7. METOPROLOL [Suspect]
     Active Substance: METOPROLOL
     Indication: Hypertension
     Dosage: UNK
     Route: 065
  8. METOPROLOL [Suspect]
     Active Substance: METOPROLOL
     Indication: Atrial fibrillation

REACTIONS (17)
  - Thyrotoxic crisis [Unknown]
  - Acute kidney injury [Unknown]
  - Obstructive airways disorder [Unknown]
  - Lactic acidosis [Unknown]
  - Hypokinesia [Unknown]
  - Encephalopathy [Unknown]
  - Aortic stenosis [Unknown]
  - Condition aggravated [Unknown]
  - Drug ineffective [Unknown]
  - Faeces discoloured [Unknown]
  - Lethargy [Unknown]
  - Confusional state [Unknown]
  - Hypotension [Unknown]
  - Anaemia [Unknown]
  - Hypertransaminasaemia [Unknown]
  - Liver function test abnormal [Unknown]
  - Treatment noncompliance [Unknown]
